FAERS Safety Report 8197691-9 (Version None)
Quarter: 2012Q1

REPORT INFORMATION
  Report Type: 
  Country: None (occurrence: None)
  Receive Date: 20120309
  Receipt Date: 20120228
  Transmission Date: 20120608
  Serious: Yes (Hospitalization)
  Sender: FDA-Public Use
  Company Number: FR-JNJFOC-20120214450

PATIENT
  Sex: Male
  Weight: 38.2 kg

DRUGS (8)
  1. ALL OTHER THERAPEUTIC PRODUCTS [Concomitant]
     Route: 048
  2. REMICADE [Suspect]
     Indication: CROHN'S DISEASE
     Route: 042
     Dates: start: 20100301
  3. IRON [Concomitant]
  4. PREDNISONE [Concomitant]
     Indication: CROHN'S DISEASE
  5. ANTIBIOTICS [Concomitant]
     Indication: CROHN'S DISEASE
  6. OMEPRAZOLE [Concomitant]
  7. AZATHIOPRINE [Concomitant]
     Indication: CROHN'S DISEASE
  8. CHOLECALCIFEROL [Concomitant]

REACTIONS (1)
  - GASTROENTERITIS [None]
